FAERS Safety Report 10049832 (Version 2)
Quarter: 2014Q2

REPORT INFORMATION
  Report Type: Spontaneous
  Country: FR (occurrence: None)
  Receive Date: 20140328
  Receipt Date: 20140604
  Transmission Date: 20141212
  Serious: Yes (Hospitalization)
  Sender: FDA-Public Use
  Company Number: SYM-2014-18928

PATIENT
  Age: 68 Year
  Sex: Female

DRUGS (11)
  1. MONO-TILDIEM LP (DILTIAZEM HYDROCHLORIDE) [Suspect]
     Indication: PRODUCT USED FOR UNKNOWN INDICATION
     Dosage: 200 MG, 1 IN 1 D, ORAL
     Route: 048
     Dates: start: 20140124, end: 20140129
  2. PROCORALAN [Suspect]
     Indication: PRODUCT USED FOR UNKNOWN INDICATION
     Dosage: 10 MG, 2 IN 1 D, ORAL
     Route: 048
     Dates: start: 20140124, end: 20140129
  3. KARDEGIC [Concomitant]
  4. LAROXYL (AMITRIPTYLINE HYDROCHLORIDE) (AMITRIPTYLINE HYDROCHLORIDE) [Concomitant]
  5. INEXIUM (ESOMEPRAZOLE MAGNESIUM) [Concomitant]
  6. LASILIX (FUROSEMIDE) [Concomitant]
  7. LYRICA (PREGABALIN) [Concomitant]
  8. NOVONORM (REPAGLINIDE) [Concomitant]
  9. JANUVIA (SITAGLIPTIN PHOSPHATE) [Concomitant]
  10. COZAAR (LOSARTAN POTASSIUM) [Concomitant]
  11. ZOPICLONE [Concomitant]

REACTIONS (9)
  - Respiratory failure [None]
  - Respiratory acidosis [None]
  - Renal failure acute [None]
  - Sinus bradycardia [None]
  - Atrioventricular block [None]
  - Hypoxia [None]
  - Hypercapnia [None]
  - Tachycardia [None]
  - Blood pressure increased [None]
